FAERS Safety Report 14157605 (Version 1)
Quarter: 2017Q4

REPORT INFORMATION
  Report Type: Spontaneous
  Country: US (occurrence: US)
  Receive Date: 20171103
  Receipt Date: 20171103
  Transmission Date: 20180321
  Serious: No
  Sender: FDA-Public Use
  Company Number: US-LUNDBECK-DKLU2039484

PATIENT
  Sex: Female

DRUGS (3)
  1. NORTHERA [Suspect]
     Active Substance: DROXIDOPA
     Route: 048
     Dates: start: 20170908, end: 20170922
  2. NORTHERA [Suspect]
     Active Substance: DROXIDOPA
     Route: 048
     Dates: start: 20170922
  3. NORTHERA [Suspect]
     Active Substance: DROXIDOPA
     Indication: QUADRIPLEGIA
     Dosage: SCHEDULE C
     Route: 048
     Dates: start: 20170906, end: 20170908

REACTIONS (1)
  - Off label use [Unknown]
